FAERS Safety Report 6026922-6 (Version None)
Quarter: 2009Q1

REPORT INFORMATION
  Report Type: 
  Country: None (occurrence: None)
  Receive Date: 20090105
  Receipt Date: 20081219
  Transmission Date: 20090719
  Serious: Yes (Death)
  Sender: FDA-Public Use
  Company Number: FR-CELGENEUS-TNZFR200800158

PATIENT
  Sex: Male
  Weight: 90 kg

DRUGS (10)
  1. INNOHEP [Suspect]
     Route: 058
     Dates: start: 20080101, end: 20080101
  2. PREVISCAN [Concomitant]
     Indication: ATRIAL FIBRILLATION
     Route: 065
  3. LOVENOX [Concomitant]
     Indication: DRUG USE FOR UNKNOWN INDICATION
     Route: 065
     Dates: start: 20080612, end: 20080612
  4. LOVENOX [Concomitant]
     Route: 065
     Dates: start: 20080614
  5. AMLOR [Concomitant]
     Indication: DRUG USE FOR UNKNOWN INDICATION
     Route: 065
     Dates: start: 20080613
  6. DIGOXIN [Concomitant]
     Indication: DRUG USE FOR UNKNOWN INDICATION
     Route: 065
     Dates: start: 20080613
  7. CEFUROXIME [Concomitant]
     Indication: DRUG USE FOR UNKNOWN INDICATION
     Route: 065
     Dates: start: 20080613
  8. MORPHINE [Concomitant]
     Indication: DRUG USE FOR UNKNOWN INDICATION
     Route: 065
     Dates: start: 20080613
  9. RANITIDINE HCL [Concomitant]
     Indication: DRUG USE FOR UNKNOWN INDICATION
     Route: 065
     Dates: start: 20080613
  10. NEXIUM [Concomitant]
     Indication: DRUG USE FOR UNKNOWN INDICATION
     Route: 065
     Dates: start: 20080613

REACTIONS (3)
  - MEDICATION ERROR [None]
  - PULMONARY EMBOLISM [None]
  - UNDERDOSE [None]
